FAERS Safety Report 25930814 (Version 2)
Quarter: 2025Q4

REPORT INFORMATION
  Report Type: Spontaneous
  Country: EU (occurrence: EU)
  Receive Date: 20251016
  Receipt Date: 20251028
  Transmission Date: 20260117
  Serious: Yes (Hospitalization, Other)
  Sender: NOVO NORDISK
  Company Number: EU-NOVOPROD-1524509

PATIENT
  Age: 852 Month
  Sex: Female
  Weight: 111 kg

DRUGS (5)
  1. SAXENDA [Suspect]
     Active Substance: LIRAGLUTIDE
     Indication: Obesity
     Dosage: 0.6 MG, QD
     Route: 058
     Dates: start: 20250909, end: 20250916
  2. EDOXABAN TOSYLATE [Concomitant]
     Active Substance: EDOXABAN TOSYLATE
     Indication: Cardiac fibrillation
     Dosage: UNK
  3. CORDARONE [Concomitant]
     Active Substance: AMIODARONE HYDROCHLORIDE
     Indication: Cardiac fibrillation
     Dosage: UNK
  4. PANTOPRAZOLE [Concomitant]
     Active Substance: PANTOPRAZOLE
     Indication: Cardiac fibrillation
     Dosage: UNK
  5. UROSTEMOL [Concomitant]
     Indication: Renal failure
     Dosage: UNK

REACTIONS (2)
  - Hypotension [Recovered/Resolved]
  - Pernicious anaemia [Recovered/Resolved]

NARRATIVE: CASE EVENT DATE: 20250909
